FAERS Safety Report 16971910 (Version 1)
Quarter: 2019Q4

REPORT INFORMATION
  Report Type: Spontaneous
  Country: US (occurrence: US)
  Receive Date: 20190912
  Receipt Date: 20190912
  Transmission Date: 20200122
  Serious: No
  Sender: FDA-Public Use
  Company Number: None

PATIENT
  Age: 65 Year
  Sex: Male
  Weight: 133.36 kg

DRUGS (18)
  1. DIPROLENE [Concomitant]
     Active Substance: BETAMETHASONE DIPROPIONATE
  2. TOPROL XL [Concomitant]
     Active Substance: METOPROLOL SUCCINATE
  3. MICONAZOLE. [Concomitant]
     Active Substance: MICONAZOLE
  4. MIRTAZAPINE. [Suspect]
     Active Substance: MIRTAZAPINE
     Indication: SLEEP DISORDER
     Dosage: ?          QUANTITY:1 DF DOSAGE FORM;?
     Route: 048
     Dates: start: 20190604, end: 20190801
  5. KLONOPIN [Concomitant]
     Active Substance: CLONAZEPAM
  6. PRAVACHOL [Concomitant]
     Active Substance: PRAVASTATIN SODIUM
  7. GEODON [Concomitant]
     Active Substance: ZIPRASIDONE HYDROCHLORIDE\ZIPRASIDONE MESYLATE
  8. MIRALAX [Concomitant]
     Active Substance: POLYETHYLENE GLYCOL 3350
  9. ATIVAN [Concomitant]
     Active Substance: LORAZEPAM
  10. ZANTAC [Concomitant]
     Active Substance: RANITIDINE HYDROCHLORIDE
  11. ZOLOFT [Concomitant]
     Active Substance: SERTRALINE HYDROCHLORIDE
  12. HALCION [Concomitant]
     Active Substance: TRIAZOLAM
  13. EFFEXOR XR [Concomitant]
     Active Substance: VENLAFAXINE HYDROCHLORIDE
  14. CENTRUM SILVER MEN 50+ [Concomitant]
     Active Substance: MINERALS\VITAMINS
  15. COGENTIN [Concomitant]
     Active Substance: BENZTROPINE MESYLATE
  16. INVEGA [Concomitant]
     Active Substance: PALIPERIDONE
  17. PROTONIX [Concomitant]
     Active Substance: PANTOPRAZOLE SODIUM
  18. VITAMIN D3 [Concomitant]
     Active Substance: CHOLECALCIFEROL

REACTIONS (4)
  - Irritability [None]
  - Muscular weakness [None]
  - Peripheral swelling [None]
  - Weight increased [None]

NARRATIVE: CASE EVENT DATE: 20190605
